FAERS Safety Report 5357995-1 (Version None)
Quarter: 2007Q2

REPORT INFORMATION
  Report Type: 
  Country: None (occurrence: None)
  Receive Date: 20070530
  Receipt Date: 20061211
  Transmission Date: 20071010
  Serious: Yes (Hospitalization)
  Sender: FDA-Public Use
  Company Number: US200612002138

PATIENT
  Age: 32 Year
  Sex: Male
  Weight: 111.6 kg

DRUGS (2)
  1. ZYPREXA [Suspect]
     Dates: start: 19960101, end: 20060101
  2. RISPERIDONE [Concomitant]

REACTIONS (5)
  - BLOOD CHOLESTEROL INCREASED [None]
  - BLOOD TRIGLYCERIDES INCREASED [None]
  - DIABETES MELLITUS [None]
  - METABOLIC DISORDER [None]
  - PANCREATITIS [None]
